FAERS Safety Report 9640377 (Version 1)
Quarter: 2013Q4

REPORT INFORMATION
  Report Type: Spontaneous
  Country: US (occurrence: None)
  Receive Date: 20131021
  Receipt Date: 20131021
  Transmission Date: 20140711
  Serious: Yes (Other)
  Sender: FDA-Public Use
  Company Number: RB-58707-2013

PATIENT
  Age: 63 Year
  Sex: Female

DRUGS (1)
  1. DELSYM [Suspect]
     Indication: PRODUCT USED FOR UNKNOWN INDICATION
     Dosage: TOOK 10 ML OF PRODUCT ONCE ON 28-SEP-2013. ORAL
     Route: 048
     Dates: start: 20130928, end: 20130928

REACTIONS (2)
  - Vomiting [None]
  - Syncope [None]
